FAERS Safety Report 7471138-X (Version None)
Quarter: 2011Q2

REPORT INFORMATION
  Report Type: 
  Country: None (occurrence: None)
  Receive Date: 20110510
  Receipt Date: 20110509
  Transmission Date: 20111010
  Serious: Yes (Other)
  Sender: FDA-Public Use
  Company Number: JP-PFIZER INC-2011077235

PATIENT
  Age: 82 Year
  Sex: Male

DRUGS (4)
  1. LIPITOR [Suspect]
     Dosage: 10 MG, 1X/DAY
     Route: 048
     Dates: start: 20100314, end: 20110301
  2. LOSARTAN POTASSIUM [Suspect]
     Dosage: 25 MG, UNK
     Route: 048
     Dates: start: 20100314, end: 20110301
  3. WARFARIN [Concomitant]
     Dosage: UNK
     Dates: start: 20100314
  4. BASEN [Concomitant]
     Dosage: UNK
     Dates: start: 20100314, end: 20110301

REACTIONS (1)
  - HYPOGLYCAEMIA [None]
